FAERS Safety Report 4543095-7 (Version None)
Quarter: 2004Q4

REPORT INFORMATION
  Report Type: 
  Country: None (occurrence: None)
  Receive Date: 20041229
  Receipt Date: 20041229
  Transmission Date: 20050328
  Serious: Yes (Life-Threatening, Hospitalization)
  Sender: FDA-Public Use
  Company Number: None

PATIENT
  Age: 39 Year
  Sex: Female
  Weight: 134.7183 kg

DRUGS (13)
  1. MORPHINE [Suspect]
     Indication: PAIN
     Dosage: PCA-BASAL RATE 4 MG/HR 3 MG Q10 MIN
     Dates: start: 20020909, end: 20040910
  2. NAFALLIN ` [Concomitant]
  3. ZOFRAN [Concomitant]
  4. ENALAPRIL [Concomitant]
  5. SINGULAIR [Concomitant]
  6. PROZAC [Concomitant]
  7. DOCUSATE [Concomitant]
  8. VERSED [Concomitant]
  9. TORADOL [Concomitant]
  10. AMBIEN [Concomitant]
  11. AVAPRO [Concomitant]
  12. GABAPENTIN [Concomitant]
  13. CLONAZEPAM [Concomitant]

REACTIONS (2)
  - DRUG INEFFECTIVE [None]
  - RESPIRATORY ARREST [None]
